FAERS Safety Report 14773152 (Version 4)
Quarter: 2018Q2

REPORT INFORMATION
  Report Type: Report from Study
  Country: BR (occurrence: BR)
  Receive Date: 20180418
  Receipt Date: 20180605
  Transmission Date: 20180711
  Serious: Yes (Life-Threatening, Hospitalization, Other)
  Sender: FDA-Public Use
  Company Number: BR-ROCHE-1962294

PATIENT
  Sex: Female
  Weight: 72.5 kg

DRUGS (38)
  1. XOLAIR [Suspect]
     Active Substance: OMALIZUMAB
     Indication: HYPERSENSITIVITY
     Dosage: UNK
     Route: 058
     Dates: start: 20170408, end: 20170408
  2. FUROSEMIDE. [Concomitant]
     Active Substance: FUROSEMIDE
     Indication: HYPERTENSION
     Dosage: 2 DF, QD (OVER 20 YEARS AGO)
     Route: 048
  3. ALENIA (BRAZIL) [Concomitant]
     Active Substance: BUDESONIDE\FORMOTEROL FUMARATE
     Indication: HYPERSENSITIVITY
     Dosage: 2 DF, (SPRAY) EVERY 12 HOURS
     Route: 055
  4. AMINOPHYLLINE. [Concomitant]
     Active Substance: AMINOPHYLLINE
     Indication: ASTHMA
     Dosage: 2 DF, QD IF THERE IS AN EPISODE, 3 TABLETS A DAY) (12 YEARS AGO)
     Route: 048
  5. FUROSEMIDE. [Concomitant]
     Active Substance: FUROSEMIDE
     Dosage: 50 MG, UNK (30 YEARS AGO)
     Route: 065
  6. NIFEDIPINE. [Concomitant]
     Active Substance: NIFEDIPINE
     Indication: HYPERTENSION
     Route: 065
  7. SPIRONOLACTONE. [Concomitant]
     Active Substance: SPIRONOLACTONE
     Indication: DYSPNOEA
     Dosage: 25 MG, BID (STARTED USING MORE THAN 10 YEARS AGO)
     Route: 048
  8. AMLODIPINE [Concomitant]
     Active Substance: AMLODIPINE BESYLATE
     Indication: HYPERTENSION
     Dosage: 4 DF, QD (OVER 20 YEARS AGO)
     Route: 048
  9. LOSARTAN. [Concomitant]
     Active Substance: LOSARTAN
     Indication: HYPERTENSION
     Dosage: 2 DF, QD (OVER 20 YEARS AGO)
     Route: 048
  10. FORMOTEROL [Concomitant]
     Active Substance: FORMOTEROL
     Indication: HYPERSENSITIVITY
     Route: 065
  11. METICORTEN [Concomitant]
     Active Substance: PREDNISONE
     Indication: HYPERSENSITIVITY
     Dosage: 2 DF,  (2 SPRAYS EVERY 12 HOURS)
     Route: 055
  12. AEROLIN [Concomitant]
     Active Substance: ALBUTEROL
     Indication: ASTHMA
     Dosage: 2 DF, QD (OVER 20 YEARS AGO)
     Route: 055
  13. XOLAIR [Suspect]
     Active Substance: OMALIZUMAB
     Dosage: UNK
     Route: 058
     Dates: start: 20171101
  14. XOLAIR [Suspect]
     Active Substance: OMALIZUMAB
     Dosage: UNK
     Route: 058
     Dates: start: 20180315
  15. SPIRONOLACTONE. [Concomitant]
     Active Substance: SPIRONOLACTONE
     Indication: ASTHMA
     Route: 065
  16. SIMVASTATIN. [Concomitant]
     Active Substance: SIMVASTATIN
     Indication: BLOOD CHOLESTEROL INCREASED
     Dosage: 2 DF, QD (OVER 10 YEARS AGO)
     Route: 048
  17. XOLAIR [Suspect]
     Active Substance: OMALIZUMAB
     Indication: ASTHMA
     Dosage: EVERY 28 DAYS (BEGAN USING 5 YEARS AGO)
     Route: 058
     Dates: start: 20120101
  18. LOSARTAN. [Concomitant]
     Active Substance: LOSARTAN
     Indication: HEART RATE DECREASED
     Dosage: 50 MG, BID ( 12 YEARS)
     Route: 048
  19. BUDESONIDE. [Concomitant]
     Active Substance: BUDESONIDE
     Indication: RHINITIS ALLERGIC
     Dosage: 2 DF, (IN EACH NOSTRIL EVERY 4 HOURS)
     Route: 055
  20. SYMBICORT [Concomitant]
     Active Substance: BUDESONIDE\FORMOTEROL FUMARATE DIHYDRATE
     Dosage: 2 DF, QD (OVER 20 YEARS AGO)
     Route: 055
  21. PREDNISOLONE. [Concomitant]
     Active Substance: PREDNISOLONE
     Indication: DYSPNOEA
     Dosage: 2 DF, QD
     Route: 048
  22. FORMOTEROL [Concomitant]
     Active Substance: FORMOTEROL
     Indication: ASTHMA
     Dosage: 400 MG, BID (EVERY 12 HOURS) STARTED USING OVER FIVE YEARS AGO
     Route: 055
  23. METICORTEN [Concomitant]
     Active Substance: PREDNISONE
     Indication: ASTHMA
     Route: 065
  24. BUDESONIDE. [Concomitant]
     Active Substance: BUDESONIDE
     Indication: ASTHMA
     Dosage: 2 DF, QD (OVER 20 YEARS AGO)
     Route: 055
  25. PHENOBARBITAL. [Concomitant]
     Active Substance: PHENOBARBITAL
     Indication: PRESYNCOPE
     Dosage: 2 DF, QD (OVER 20 YEARS AGO)
     Route: 048
  26. NIFEDIPINE. [Concomitant]
     Active Substance: NIFEDIPINE
     Indication: HEART RATE DECREASED
     Dosage: 25 MG, BID (15 YEARS)
     Route: 048
  27. GARDENALE [Concomitant]
     Active Substance: PHENOBARBITAL
     Indication: DEPRESSION
     Dosage: 1 DF, QD (19 YEARS)
     Route: 048
  28. GARDENALE [Concomitant]
     Active Substance: PHENOBARBITAL
     Indication: DEPRESSION
     Route: 065
  29. AMITRIPTYLINE [Concomitant]
     Active Substance: AMITRIPTYLINE
     Indication: ANXIETY
     Dosage: 25 MG, BID (STARTED USING A LONG TIME AGO)
     Route: 048
  30. SALBUTAMOL [Concomitant]
     Active Substance: ALBUTEROL
     Indication: HYPERSENSITIVITY
     Dosage: 3 DF, EVERY FOUR WEEKS STARTED THE USE MORE THAN 10 YEARS AGO
     Route: 055
  31. OXYGEN. [Concomitant]
     Active Substance: OXYGEN
     Indication: PRODUCT USED FOR UNKNOWN INDICATION
     Route: 065
  32. XOLAIR [Suspect]
     Active Substance: OMALIZUMAB
     Dosage: UNK
     Route: 058
     Dates: start: 201710
  33. FUROSEMIDE. [Concomitant]
     Active Substance: FUROSEMIDE
     Indication: HEART RATE DECREASED
     Dosage: 30 YEARS AGO
     Route: 048
  34. PREDNISOLONE. [Concomitant]
     Active Substance: PREDNISOLONE
     Dosage: 1 DF, QD
     Route: 048
  35. AMITRIPTYLINE [Concomitant]
     Active Substance: AMITRIPTYLINE
     Indication: DEPRESSION
     Dosage: 2 DF, QD (OVER 20 YEARS AGO)
     Route: 048
  36. ALENIA (BRAZIL) [Concomitant]
     Active Substance: BUDESONIDE\FORMOTEROL FUMARATE
     Indication: ASTHMA
     Route: 065
  37. SALBUTAMOL [Concomitant]
     Active Substance: ALBUTEROL
     Indication: ASTHMA
     Route: 065
  38. SYMBICORT [Concomitant]
     Active Substance: BUDESONIDE\FORMOTEROL FUMARATE DIHYDRATE
     Indication: ASTHMA
     Dosage: 2 DF, Q12H
     Route: 055

REACTIONS (19)
  - Heart rate increased [Recovering/Resolving]
  - Sensitivity to weather change [Recovering/Resolving]
  - Asthenia [Unknown]
  - Asthma [Recovering/Resolving]
  - Apparent death [Unknown]
  - Malaise [Recovering/Resolving]
  - Gait disturbance [Unknown]
  - Blood pressure increased [Recovering/Resolving]
  - Confusional state [Unknown]
  - Dyspnoea [Recovering/Resolving]
  - Asthmatic crisis [Not Recovered/Not Resolved]
  - Skin discolouration [Recovering/Resolving]
  - Obesity [Unknown]
  - Swelling [Unknown]
  - Product use in unapproved indication [Unknown]
  - Blindness [Not Recovered/Not Resolved]
  - Peripheral swelling [Recovering/Resolving]
  - Seizure [Unknown]
  - Cardiac disorder [Recovering/Resolving]
